FAERS Safety Report 25097356 (Version 1)
Quarter: 2025Q1

REPORT INFORMATION
  Report Type: Spontaneous
  Country: US (occurrence: US)
  Receive Date: 20250320
  Receipt Date: 20250320
  Transmission Date: 20250409
  Serious: Yes (Other)
  Sender: CIPLA
  Company Number: US-CIPLA LTD.-2025US03276

PATIENT

DRUGS (1)
  1. LEUPROLIDE ACETATE [Suspect]
     Active Substance: LEUPROLIDE ACETATE
     Indication: Endometriosis
     Route: 030

REACTIONS (5)
  - Injection site abscess sterile [Recovered/Resolved]
  - Disease progression [Recovered/Resolved]
  - Injection site oedema [Recovered/Resolved]
  - Condition aggravated [Recovered/Resolved]
  - Injection site pain [Recovered/Resolved]
